FAERS Safety Report 6522016-1 (Version None)
Quarter: 2009Q4

REPORT INFORMATION
  Report Type: 
  Country: None (occurrence: None)
  Receive Date: 20091224
  Receipt Date: 20091221
  Transmission Date: 20100525
  Serious: Yes (Death, Hospitalization)
  Sender: FDA-Public Use
  Company Number: 2009AC000108

PATIENT
  Age: 61 Year
  Sex: Male

DRUGS (52)
  1. DIGOXIN [Suspect]
     Dosage: 0.25 MG; QD; PO
     Route: 048
     Dates: start: 20030101
  2. GLUCOTROL [Concomitant]
  3. JANUVIA [Concomitant]
  4. COUMADIN [Concomitant]
  5. GABAPENTIN [Concomitant]
  6. SPIRIVA [Concomitant]
  7. MIRTAZAPINE [Concomitant]
  8. AMBIEN [Concomitant]
  9. NORVASC [Concomitant]
  10. CYCLOBENZAPRINE [Concomitant]
  11. FUROSEMIDE [Concomitant]
  12. POTASSIUM [Concomitant]
  13. COMBIVENT [Concomitant]
  14. COREG [Concomitant]
  15. ALTACE [Concomitant]
  16. ISOSORBIDE [Concomitant]
  17. SPIRONOLACTONE [Concomitant]
  18. WARFARIN SODIUM [Concomitant]
  19. RANHIDINE [Concomitant]
  20. TEMAZEPAM [Concomitant]
  21. LANTUS [Concomitant]
  22. FLOMAX [Concomitant]
  23. ZAROXOLYN [Concomitant]
  24. ASPIRIN [Concomitant]
  25. ALLOPURINOL [Concomitant]
  26. ISORDIL [Concomitant]
  27. EFFEXOR [Concomitant]
  28. INSPRA [Concomitant]
  29. LANTUS [Concomitant]
  30. CEFUROXIME [Concomitant]
  31. PROMETHAZINE [Concomitant]
  32. PREDNISONE [Concomitant]
  33. CIPROFLOXACIN [Concomitant]
  34. CARVEDILOL [Concomitant]
  35. MIRTAZAPINE [Concomitant]
  36. METOLAZONE [Concomitant]
  37. INSULIN [Concomitant]
  38. GABAPENTIN [Concomitant]
  39. JANUVIA [Concomitant]
  40. ASCENSIA [Concomitant]
  41. TRICOR [Concomitant]
  42. MIRTAZAPINE [Concomitant]
  43. DICLOXACILLIN [Concomitant]
  44. METOLAZONE [Concomitant]
  45. POTASSIUM CHLORIDE [Concomitant]
  46. WARFARIN SODIUM [Concomitant]
  47. GLIPIZIDE [Concomitant]
  48. EFFEXOR [Concomitant]
  49. SPIRIVA [Concomitant]
  50. NITROLINGUAL [Concomitant]
  51. NEXIUM [Concomitant]
  52. PROPOXYPHEN-APAP [Concomitant]

REACTIONS (24)
  - ANXIETY [None]
  - ARTERIOSCLEROSIS CORONARY ARTERY [None]
  - ASTHENIA [None]
  - ATRIAL FIBRILLATION [None]
  - CARDIAC FAILURE CONGESTIVE [None]
  - CARDIOMYOPATHY [None]
  - CERUMEN IMPACTION [None]
  - CORONARY ARTERY DISEASE [None]
  - DEPRESSION [None]
  - DIABETES MELLITUS [None]
  - ECONOMIC PROBLEM [None]
  - EJECTION FRACTION DECREASED [None]
  - FATIGUE [None]
  - HYPOAESTHESIA [None]
  - INSOMNIA [None]
  - MULTIPLE INJURIES [None]
  - MYOCARDIAL INFARCTION [None]
  - PAIN IN EXTREMITY [None]
  - PLEURAL EFFUSION [None]
  - PNEUMONIA [None]
  - POOR QUALITY SLEEP [None]
  - PSORIASIS [None]
  - RENAL FAILURE [None]
  - URINARY RETENTION [None]
